FAERS Safety Report 12398602 (Version 1)
Quarter: 2016Q2

REPORT INFORMATION
  Report Type: Spontaneous
  Country: GB (occurrence: GB)
  Receive Date: 20160524
  Receipt Date: 20160524
  Transmission Date: 20160815
  Serious: Yes (Other)
  Sender: FDA-Public Use
  Company Number: GB-PFIZER INC-2016266063

PATIENT
  Age: 42 Year
  Sex: Female
  Weight: 82 kg

DRUGS (1)
  1. CHAMPIX [Suspect]
     Active Substance: VARENICLINE TARTRATE
     Indication: SMOKING CESSATION THERAPY
     Dosage: 1 MG, UNK
     Route: 048
     Dates: start: 20160413, end: 20160503

REACTIONS (4)
  - Depression [Recovered/Resolved]
  - Depressed mood [Recovered/Resolved]
  - Antisocial behaviour [Recovered/Resolved]
  - Flat affect [Recovered/Resolved]

NARRATIVE: CASE EVENT DATE: 20160427
